FAERS Safety Report 9366086 (Version 1)
Quarter: 2013Q2

REPORT INFORMATION
  Report Type: Spontaneous
  Country: DK (occurrence: DK)
  Receive Date: 20130625
  Receipt Date: 20130625
  Transmission Date: 20140414
  Serious: Yes (Hospitalization, Other)
  Sender: FDA-Public Use
  Company Number: DK-PFIZER INC-2013188134

PATIENT
  Age: 67 Year
  Sex: Female

DRUGS (5)
  1. LYRICA [Suspect]
     Indication: PAIN
     Dosage: 150 MG, 2X/DAY
     Route: 048
     Dates: start: 201303
  2. SERTRALIN ^TEVA^ [Suspect]
     Indication: DEPRESSION
     Dosage: 50 MG, 1X/DAY
     Route: 048
  3. METADON ^DAK^ [Suspect]
     Indication: PAIN
     Dosage: STRENGHT: 5 MG
     Route: 048
  4. PINEX [Concomitant]
     Indication: PAIN
  5. DIAZEPAM [Concomitant]

REACTIONS (6)
  - Vomiting [Recovered/Resolved]
  - Nausea [Recovered/Resolved]
  - Fatigue [Recovered/Resolved]
  - Electrocardiogram QT prolonged [Unknown]
  - White blood cell count increased [Unknown]
  - Electrolyte imbalance [Unknown]
